FAERS Safety Report 7964070-6 (Version None)
Quarter: 2011Q4

REPORT INFORMATION
  Report Type: 
  Country: None (occurrence: None)
  Receive Date: 20111208
  Receipt Date: 20111130
  Transmission Date: 20120403
  Serious: Yes (Disabling)
  Sender: FDA-Public Use
  Company Number: GB-SP-2011-11819

PATIENT
  Age: 70 Year
  Sex: Male

DRUGS (2)
  1. TICE BCG [Suspect]
     Indication: PRODUCT USED FOR UNKNOWN INDICATION
     Dosage: NOT REPORTED
     Route: 043
  2. TAMSULOSIN HCL [Concomitant]

REACTIONS (1)
  - ARTHRITIS REACTIVE [None]
